FAERS Safety Report 14116897 (Version 2)
Quarter: 2018Q2

REPORT INFORMATION
  Report Type: Spontaneous
  Country: FR (occurrence: FR)
  Receive Date: 20171023
  Receipt Date: 20180521
  Transmission Date: 20180711
  Serious: Yes (Hospitalization, Other)
  Sender: FDA-Public Use
  Company Number: FR-MERCK KGAA-2031182

PATIENT
  Age: 46 Year
  Sex: Female

DRUGS (1)
  1. NOVOTHYROX [Suspect]
     Active Substance: LEVOTHYROXINE SODIUM
     Indication: HYPOTHYROIDISM
     Route: 048
     Dates: start: 20170713, end: 20170906

REACTIONS (29)
  - Rash [Recovering/Resolving]
  - Eye oedema [Recovering/Resolving]
  - Goitre [Not Recovered/Not Resolved]
  - Insomnia [Recovering/Resolving]
  - Psychomotor skills impaired [Recovering/Resolving]
  - Asthenia [Recovering/Resolving]
  - Headache [Recovering/Resolving]
  - Muscular weakness [Recovering/Resolving]
  - Loss of personal independence in daily activities [Recovering/Resolving]
  - Diffuse alopecia [Recovering/Resolving]
  - Facial asymmetry [Not Recovered/Not Resolved]
  - Decreased activity [Recovering/Resolving]
  - Psychomotor hyperactivity [Not Recovered/Not Resolved]
  - Disturbance in attention [Recovering/Resolving]
  - Speech disorder [Recovering/Resolving]
  - Laryngeal pain [Recovering/Resolving]
  - Fatigue [Recovering/Resolving]
  - Dysstasia [Recovering/Resolving]
  - Learning disorder [Recovering/Resolving]
  - Gait disturbance [Recovering/Resolving]
  - Face oedema [Recovering/Resolving]
  - Oesophageal pain [Recovering/Resolving]
  - Hypokinesia [Not Recovered/Not Resolved]
  - Impaired work ability [Recovering/Resolving]
  - Facial paralysis [Recovering/Resolving]
  - Cerebrovascular disorder [Recovering/Resolving]
  - Amnesia [Not Recovered/Not Resolved]
  - Aphasia [Recovering/Resolving]
  - Pain [Recovering/Resolving]

NARRATIVE: CASE EVENT DATE: 2017
